FAERS Safety Report 21991766 (Version 1)
Quarter: 2023Q1

REPORT INFORMATION
  Report Type: Spontaneous
  Country: CA (occurrence: CA)
  Receive Date: 20230214
  Receipt Date: 20230214
  Transmission Date: 20230418
  Serious: Yes (Death, Other)
  Sender: FDA-Public Use
  Company Number: CA-FreseniusKabi-FK202301515

PATIENT
  Age: 43 Year
  Sex: Male

DRUGS (5)
  1. GANCICLOVIR SODIUM [Suspect]
     Active Substance: GANCICLOVIR SODIUM
     Indication: Encephalitis cytomegalovirus
     Route: 042
  2. GANCICLOVIR SODIUM [Suspect]
     Active Substance: GANCICLOVIR SODIUM
     Route: 042
  3. RITUXIMAB [Suspect]
     Active Substance: RITUXIMAB
     Indication: Epstein-Barr viraemia
  4. VALGANCICLOVIR HYDROCHLORIDE [Suspect]
     Active Substance: VALGANCICLOVIR HYDROCHLORIDE
     Indication: Cytomegalovirus infection reactivation
  5. FOSCARNET SODIUM [Concomitant]
     Active Substance: FOSCARNET SODIUM
     Indication: Product used for unknown indication
     Route: 065

REACTIONS (7)
  - Acute kidney injury [Fatal]
  - Off label use [Fatal]
  - BK virus infection [Fatal]
  - Cytomegalovirus infection reactivation [Fatal]
  - Encephalitis cytomegalovirus [Fatal]
  - Myelosuppression [Fatal]
  - Drug ineffective [Fatal]
